FAERS Safety Report 9785981 (Version 1)
Quarter: 2013Q4

REPORT INFORMATION
  Report Type: Spontaneous
  Country: US (occurrence: US)
  Receive Date: 20131227
  Receipt Date: 20131227
  Transmission Date: 20140711
  Serious: No
  Sender: FDA-Public Use
  Company Number: US-B.I. PHARMACEUTICALS,INC./RIDGEFIELD-2013-BI-42532BP

PATIENT
  Age: 15 Year
  Sex: Male
  Weight: 95 kg

DRUGS (3)
  1. ZANTAC (RANITIDINE HYDROCHLORIDE) [Suspect]
     Indication: DYSPEPSIA
     Dosage: 150 MG
     Route: 048
     Dates: start: 20131216
  2. ZANTAC (RANITIDINE HYDROCHLORIDE) [Suspect]
     Indication: DYSPEPSIA
  3. RANITIDINE [Suspect]
     Dosage: 225 MG

REACTIONS (2)
  - Incorrect drug administration rate [Recovered/Resolved]
  - Dizziness [Unknown]
